FAERS Safety Report 23473657 (Version 1)
Quarter: 2024Q1

REPORT INFORMATION
  Report Type: Spontaneous
  Country: IN (occurrence: IN)
  Receive Date: 20240203
  Receipt Date: 20240203
  Transmission Date: 20240410
  Serious: Yes (Hospitalization, Other)
  Sender: FDA-Public Use
  Company Number: IN-MLMSERVICE-20240118-4782122-1

PATIENT
  Age: 56 Year
  Sex: Male

DRUGS (9)
  1. TACROLIMUS [Suspect]
     Active Substance: TACROLIMUS
     Indication: Immunosuppressant drug therapy
     Dates: start: 202110
  2. THYMOCYTE IMMUNE GLOBULIN NOS [Suspect]
     Active Substance: THYMOCYTE IMMUNE GLOBULIN NOS
     Indication: Immunosuppressant drug therapy
     Dosage: 3 MG/KG (200 MG) STRENGTH: 200 MG
     Dates: start: 202110, end: 202110
  3. METHYLPREDNISOLONE [Suspect]
     Active Substance: METHYLPREDNISOLONE
     Indication: Immunosuppressant drug therapy
     Route: 042
     Dates: start: 20211017
  4. FLUCONAZOLE [Concomitant]
     Active Substance: FLUCONAZOLE
     Route: 042
     Dates: start: 202110
  5. CEFOPERAZONE\SULBACTAM [Concomitant]
     Active Substance: CEFOPERAZONE\SULBACTAM
     Route: 042
     Dates: start: 202110
  6. INSULIN NOS [Concomitant]
     Active Substance: INSULIN NOS
     Indication: Diabetes mellitus
  7. VALGANCICLOVIR HYDROCHLORIDE [Concomitant]
     Active Substance: VALGANCICLOVIR HYDROCHLORIDE
     Dates: start: 202110
  8. COTRIMOXAZOLE [Concomitant]
     Active Substance: SULFAMETHOXAZOLE\TRIMETHOPRIM
     Dosage: SULFAMETHOXAZOLE:160 MG, TRIMETHOPRIM:800 MG
     Dates: start: 202110
  9. THYMOCYTE IMMUNE GLOBULIN NOS [Suspect]
     Active Substance: THYMOCYTE IMMUNE GLOBULIN NOS
     Indication: Immunosuppressant drug therapy
     Dosage: 2ND DOSE OF INJECTION ALG 200 MG ON DAY 4 POSTTRANSPLANT
     Dates: start: 202110, end: 202110

REACTIONS (1)
  - Cutaneous mucormycosis [Recovering/Resolving]

NARRATIVE: CASE EVENT DATE: 20211030
